FAERS Safety Report 21167739 (Version 2)
Quarter: 2022Q3

REPORT INFORMATION
  Report Type: Spontaneous
  Country: US (occurrence: None)
  Receive Date: 20220803
  Receipt Date: 20220929
  Transmission Date: 20221026
  Serious: No
  Sender: FDA-Public Use
  Company Number: 2022A274297

PATIENT
  Sex: Female

DRUGS (2)
  1. BYDUREON BCISE [Suspect]
     Active Substance: EXENATIDE
     Route: 065
  2. BYDUREON BCISE [Concomitant]
     Active Substance: EXENATIDE
     Route: 065

REACTIONS (3)
  - Glycosylated haemoglobin decreased [Not Recovered/Not Resolved]
  - Confusional state [Unknown]
  - Device malfunction [Unknown]
